FAERS Safety Report 5228715-6 (Version None)
Quarter: 2007Q1

REPORT INFORMATION
  Report Type: 
  Country: None (occurrence: None)
  Receive Date: 20070205
  Receipt Date: 20070124
  Transmission Date: 20070707
  Serious: Yes (Other)
  Sender: FDA-Public Use
  Company Number: PHBS2007ES01503

PATIENT
  Age: 77 Year
  Sex: Female

DRUGS (1)
  1. ZOMETA [Suspect]
     Indication: BREAST NEOPLASM
     Dosage: 4 MG
     Route: 065
     Dates: start: 20050224, end: 20060512

REACTIONS (2)
  - OSTEOMYELITIS [None]
  - TOOTH EXTRACTION [None]
